FAERS Safety Report 4995048-2 (Version None)
Quarter: 2006Q2

REPORT INFORMATION
  Report Type: 
  Country: None (occurrence: None)
  Receive Date: 20060508
  Receipt Date: 20060424
  Transmission Date: 20061013
  Serious: Yes (Hospitalization)
  Sender: FDA-Public Use
  Company Number: NL-GLAXOSMITHKLINE-B0422460A

PATIENT
  Age: 47 Year
  Sex: Male

DRUGS (4)
  1. PAROXETINE HCL [Suspect]
     Indication: ANXIETY
     Dosage: 20MG PER DAY
     Dates: start: 20051218, end: 20051225
  2. ZYPREXA [Concomitant]
     Dosage: 20MG PER DAY
     Dates: start: 20050101
  3. OXAZEPAM [Concomitant]
     Indication: ANXIETY
     Dosage: 30MG PER DAY
  4. LORMETAZEPAM [Concomitant]
     Indication: SLEEP DISORDER
     Dosage: 1MG PER DAY

REACTIONS (3)
  - CONVULSION [None]
  - HYPONATRAEMIA [None]
  - LOSS OF CONSCIOUSNESS [None]
